FAERS Safety Report 20749903 (Version 14)
Quarter: 2024Q1

REPORT INFORMATION
  Report Type: Report from Study
  Country: CN (occurrence: CN)
  Receive Date: 20220426
  Receipt Date: 20240226
  Transmission Date: 20240409
  Serious: Yes (Death, Hospitalization)
  Sender: FDA-Public Use
  Company Number: CN-DSJP-DSE-2021-135296

PATIENT
  Age: 71 Year
  Sex: Male
  Weight: 60 kg

DRUGS (20)
  1. EDOXABAN [Suspect]
     Active Substance: EDOXABAN
     Indication: Atrial fibrillation
     Dosage: 60 MG, QD
     Route: 048
     Dates: start: 20210719, end: 20211128
  2. EDOXABAN [Suspect]
     Active Substance: EDOXABAN
     Dosage: 30 MG, QD
     Route: 048
     Dates: start: 20211129, end: 20220207
  3. Melotol [Concomitant]
     Indication: Atrial fibrillation
     Dosage: 47.5 MG, QD
     Route: 048
     Dates: start: 20210719
  4. FLUNARIZINE [Concomitant]
     Active Substance: FLUNARIZINE
     Indication: Cerebral disorder
     Dosage: 10 MG, QD (QN)
     Route: 048
     Dates: start: 20210719, end: 20220120
  5. FLUNARIZINE [Concomitant]
     Active Substance: FLUNARIZINE
     Indication: Vasospasm
  6. MACARONI [Concomitant]
     Indication: Cardiovascular insufficiency
     Dosage: 10 UL, TID
     Route: 048
     Dates: start: 20210719, end: 20220120
  7. MACARONI [Concomitant]
     Indication: Productive cough
  8. MACARONI [Concomitant]
     Indication: Cardiomyopathy
  9. MUSK [Concomitant]
     Indication: Cardiac disorder
     Dosage: 22.5 MG, TID
     Route: 048
     Dates: start: 20210719, end: 20220120
  10. ATORVASTATIN CALCIUM [Concomitant]
     Active Substance: ATORVASTATIN CALCIUM
     Indication: Carotid intima-media thickness increased
     Dosage: 20 MG, QD (QN)
     Route: 048
     Dates: start: 20210719
  11. ATORVASTATIN CALCIUM [Concomitant]
     Active Substance: ATORVASTATIN CALCIUM
     Indication: Lipids increased
  12. ATORVASTATIN CALCIUM [Concomitant]
     Active Substance: ATORVASTATIN CALCIUM
     Indication: Arteriosclerosis
  13. METOPROLOL [Concomitant]
     Active Substance: METOPROLOL
     Indication: Cardiomyopathy
     Dosage: 47.5 MG, QD
     Route: 065
  14. XIN TONG [ANGELICA SINENSIS ROOT;ASTRAGALUS MONGHOLICUS ROOT;CITRUS X [Concomitant]
     Indication: Cardiomyopathy
     Dosage: 10 ML, TID
     Route: 048
  15. SHEXIANG BAOXIN [Concomitant]
     Indication: Cardiomyopathy
     Dosage: 22.5 MG, TID (PILL)
     Route: 065
  16. XINNAONING [Concomitant]
     Indication: Cardiomyopathy
     Dosage: 0.9 G, TID
     Route: 048
     Dates: start: 20210120
  17. LACTULOSE [Concomitant]
     Active Substance: LACTULOSE
     Indication: Gastrointestinal disorder
     Dosage: UNK (10 MILLILITER/CUBIC CENTIMETER)
     Route: 048
     Dates: start: 20220120
  18. SUCRALFATE [Concomitant]
     Active Substance: SUCRALFATE
     Indication: Abdominal discomfort
     Dosage: UNK (10 MILLILITER/CUBIC CENTIMETER)
     Route: 048
     Dates: start: 20220120
  19. RABEPRAZOLE [Concomitant]
     Active Substance: RABEPRAZOLE
     Indication: Abdominal discomfort
     Dosage: UNK (20 MILLILITER/CUBIC CENTIMETER)
     Route: 048
     Dates: start: 20220120
  20. LEVOFLOXACIN [Concomitant]
     Active Substance: LEVOFLOXACIN
     Indication: Anti-infective therapy
     Dosage: 1 DF, QD
     Route: 048
     Dates: start: 20220120

REACTIONS (7)
  - Death [Fatal]
  - Cardiac failure [Recovering/Resolving]
  - Bronchial carcinoma [Not Recovered/Not Resolved]
  - Lung neoplasm malignant [Recovering/Resolving]
  - Cardiac failure [Not Recovered/Not Resolved]
  - Melaena [Recovering/Resolving]
  - Faeces discoloured [Recovering/Resolving]

NARRATIVE: CASE EVENT DATE: 20210906
